FAERS Safety Report 18080164 (Version 1)
Quarter: 2020Q3

REPORT INFORMATION
  Report Type: Spontaneous
  Country: US (occurrence: US)
  Receive Date: 20200728
  Receipt Date: 20200728
  Transmission Date: 20201103
  Serious: No
  Sender: FDA-Public Use
  Company Number: None

PATIENT
  Age: 88 Year
  Sex: Female
  Weight: 43.09 kg

DRUGS (14)
  1. ADVIL [Concomitant]
     Active Substance: IBUPROFEN
  2. METHOCARBAMOL. [Concomitant]
     Active Substance: METHOCARBAMOL
  3. AZILECT [Concomitant]
     Active Substance: RASAGILINE MESYLATE
  4. CARBIDOPA?LEVIDOPA [Concomitant]
  5. EXELON [Concomitant]
     Active Substance: RIVASTIGMINE TARTRATE
  6. NEURONTIN [Concomitant]
     Active Substance: GABAPENTIN
  7. VERZENIO [Suspect]
     Active Substance: ABEMACICLIB
     Indication: BREAST CANCER
     Route: 048
     Dates: start: 20200617, end: 20200728
  8. CARVIDOPA?LEVIDOPA ER [Concomitant]
  9. MIDODRINE HCL [Concomitant]
     Active Substance: MIDODRINE HYDROCHLORIDE
  10. ACIDOPHILUS [Concomitant]
     Active Substance: LACTOBACILLUS ACIDOPHILUS
  11. LUMIGAN [Concomitant]
     Active Substance: BIMATOPROST
  12. PENICILLIN G POT IN DEXTROSE [Concomitant]
  13. POTASSIUM CHLORIDE CRY ER [Concomitant]
  14. VITAMIN D3 [Concomitant]
     Active Substance: CHOLECALCIFEROL

REACTIONS (1)
  - Hospice care [None]

NARRATIVE: CASE EVENT DATE: 20200728
